FAERS Safety Report 25092139 (Version 1)
Quarter: 2025Q1

REPORT INFORMATION
  Report Type: Spontaneous
  Country: US (occurrence: US)
  Receive Date: 20250319
  Receipt Date: 20250319
  Transmission Date: 20250409
  Serious: No
  Sender: AMGEN
  Company Number: US-AMGEN-USASP2025050086

PATIENT
  Sex: Female

DRUGS (1)
  1. REPATHA [Suspect]
     Active Substance: EVOLOCUMAB
     Indication: Hyperlipidaemia
     Dosage: 140 MILLIGRAM, Q2WK
     Route: 058
     Dates: start: 202310

REACTIONS (13)
  - Bowel movement irregularity [Unknown]
  - Gastroenteritis [Unknown]
  - Intervertebral disc protrusion [Unknown]
  - Abdominal pain lower [Recovered/Resolved]
  - Injection site bruising [Recovered/Resolved]
  - Injection site haemorrhage [Unknown]
  - Abdominal pain upper [Recovering/Resolving]
  - Back pain [Unknown]
  - Constipation [Unknown]
  - Nausea [Unknown]
  - Dysstasia [Unknown]
  - Dyspnoea [Unknown]
  - Insomnia [Unknown]

NARRATIVE: CASE EVENT DATE: 20241201
